FAERS Safety Report 12801488 (Version 4)
Quarter: 2016Q4

REPORT INFORMATION
  Report Type: Report from Study
  Country: CA (occurrence: CA)
  Receive Date: 20161003
  Receipt Date: 20161207
  Transmission Date: 20170207
  Serious: Yes (Other)
  Sender: FDA-Public Use
  Company Number: CA-ROCHE-1835710

PATIENT
  Age: 53 Year
  Sex: Female

DRUGS (7)
  1. HERCEPTIN [Suspect]
     Active Substance: TRASTUZUMAB
     Indication: HER-2 POSITIVE BREAST CANCER
     Route: 065
     Dates: start: 201206
  2. XELODA [Concomitant]
     Active Substance: CAPECITABINE
     Route: 065
  3. PERTUZUMAB [Concomitant]
     Active Substance: PERTUZUMAB
     Indication: HER-2 POSITIVE BREAST CANCER
     Route: 065
     Dates: start: 201510, end: 201603
  4. HERCEPTIN [Interacting]
     Active Substance: TRASTUZUMAB
     Indication: HER-2 POSITIVE BREAST CANCER
     Dosage: FIRST RPAP DOSE
     Route: 042
     Dates: start: 20160929
  5. LAPATINIB [Interacting]
     Active Substance: LAPATINIB
     Indication: PRODUCT USED FOR UNKNOWN INDICATION
     Route: 065
     Dates: start: 20161001, end: 20161119
  6. KADCYLA [Suspect]
     Active Substance: ADO-TRASTUZUMAB EMTANSINE
     Indication: HER-2 POSITIVE BREAST CANCER
     Route: 065
     Dates: start: 201308, end: 201603
  7. ERIBULIN [Suspect]
     Active Substance: ERIBULIN
     Indication: PRODUCT USED FOR UNKNOWN INDICATION
     Dosage: 1 DOSE
     Route: 065
     Dates: start: 20150805, end: 20150805

REACTIONS (10)
  - Arrhythmia [Recovered/Resolved]
  - Pyrexia [Unknown]
  - Drug interaction [Unknown]
  - Arthralgia [Unknown]
  - Left ventricular failure [Unknown]
  - Blood pressure increased [Unknown]
  - Chills [Unknown]
  - Adverse drug reaction [Unknown]
  - Immune system disorder [Unknown]
  - Heart rate increased [Unknown]

NARRATIVE: CASE EVENT DATE: 2015
